FAERS Safety Report 25608338 (Version 2)
Quarter: 2025Q3

REPORT INFORMATION
  Report Type: Spontaneous
  Country: TR (occurrence: TR)
  Receive Date: 20250726
  Receipt Date: 20250808
  Transmission Date: 20251020
  Serious: Yes (Death, Life-Threatening, Hospitalization)
  Sender: SANDOZ
  Company Number: TR-MLMSERVICE-20250718-PI578427-00218-3

PATIENT
  Age: 58 Year
  Sex: Male

DRUGS (10)
  1. CYTARABINE [Suspect]
     Active Substance: CYTARABINE
     Indication: Central nervous system lymphoma
     Route: 065
     Dates: start: 20240930, end: 20241003
  2. CYTARABINE [Suspect]
     Active Substance: CYTARABINE
     Route: 065
     Dates: start: 20240902, end: 202409
  3. METHOTREXATE [Suspect]
     Active Substance: METHOTREXATE
     Indication: Central nervous system lymphoma
     Route: 037
     Dates: start: 20240930, end: 20241003
  4. METHOTREXATE [Suspect]
     Active Substance: METHOTREXATE
     Route: 065
     Dates: start: 20240902, end: 202409
  5. RITUXIMAB [Suspect]
     Active Substance: RITUXIMAB
     Indication: Central nervous system lymphoma
     Route: 065
     Dates: start: 20240902, end: 202409
  6. CEFOPERAZONE SODIUM\SULBACTAM [Concomitant]
     Active Substance: CEFOPERAZONE SODIUM\SULBACTAM
     Indication: Product used for unknown indication
     Route: 065
     Dates: start: 20241010
  7. CYTARABINE [Concomitant]
     Active Substance: CYTARABINE
     Indication: Central nervous system lymphoma
     Route: 065
     Dates: start: 20240930, end: 20241003
  8. FOLIC ACID [Concomitant]
     Active Substance: FOLIC ACID
     Indication: Product used for unknown indication
     Route: 065
     Dates: start: 20241001
  9. MICAFUNGIN [Concomitant]
     Active Substance: MICAFUNGIN SODIUM
     Indication: Product used for unknown indication
     Route: 065
     Dates: start: 20241010
  10. PREDNISOLONE [Concomitant]
     Active Substance: PREDNISOLONE
     Indication: Rash erythematous
     Route: 065
     Dates: start: 20241013

REACTIONS (5)
  - Multiple organ dysfunction syndrome [Fatal]
  - Neutropenia [Fatal]
  - SJS-TEN overlap [Fatal]
  - Acute kidney injury [Fatal]
  - Oxygen saturation decreased [Fatal]

NARRATIVE: CASE EVENT DATE: 20241001
